FAERS Safety Report 8171535-3 (Version None)
Quarter: 2012Q1

REPORT INFORMATION
  Report Type: 
  Country: None (occurrence: None)
  Receive Date: 20120228
  Receipt Date: 20120222
  Transmission Date: 20120608
  Serious: Yes (Hospitalization)
  Sender: FDA-Public Use
  Company Number: ES-AMGEN-ESPCT2011064510

PATIENT
  Age: 74 Year
  Sex: Female

DRUGS (8)
  1. BLINDED DENOSUMAB [Suspect]
     Indication: BREAST CANCER
     Dosage: UNK UNK, Q3WK
     Route: 058
     Dates: start: 20110913
  2. DOXORUBICIN HCL [Concomitant]
     Dosage: 90.66 MG, Q3WK
     Route: 042
     Dates: start: 20110913
  3. BLINDED PLACEBO [Suspect]
     Indication: BREAST CANCER
     Dosage: UNK UNK, Q3WK
     Route: 058
     Dates: start: 20110913
  4. CYCLOPHOSPHAMIDE [Concomitant]
     Dosage: 906.60 MG, Q3WK
     Route: 042
     Dates: start: 20110913
  5. RASAGILINE MESYLATE [Concomitant]
     Dosage: 1 MG, QD
     Route: 048
     Dates: start: 20090101
  6. ALPRAZOLAM [Concomitant]
     Dosage: 1 MG, QD
     Route: 048
     Dates: start: 20060101
  7. CARBIDOPA AND LEVODOPA [Concomitant]
     Dosage: UNK UNK, QD
     Route: 048
     Dates: start: 20090101
  8. ESCITALOPRAM [Concomitant]
     Dosage: 10 MG, QD
     Route: 048
     Dates: start: 20090101

REACTIONS (2)
  - GENERAL PHYSICAL HEALTH DETERIORATION [None]
  - DEEP VEIN THROMBOSIS [None]
